FAERS Safety Report 6232726-1 (Version None)
Quarter: 2009Q2

REPORT INFORMATION
  Report Type: 
  Country: None (occurrence: None)
  Receive Date: 20090617
  Receipt Date: 20090605
  Transmission Date: 20091009
  Serious: Yes (Other)
  Sender: FDA-Public Use
  Company Number: GB-NOVOPROD-287136

PATIENT
  Sex: Male

DRUGS (4)
  1. NORDITROPIN [Suspect]
     Indication: HYPOPITUITARISM
     Dosage: 1.8 MG, QD
     Route: 058
     Dates: start: 20080501, end: 20090101
  2. DESMOTABS [Concomitant]
     Dosage: 0.1, 0.1 + 0.3 MG
     Route: 048
  3. LEVOTHYROXINE SODIUM [Concomitant]
     Dosage: 75 MG, QD
     Route: 048
  4. HYDROCORTISONE [Concomitant]
     Dosage: 7.5 + 5 MG
     Route: 048

REACTIONS (1)
  - NEOPLASM PROGRESSION [None]
